FAERS Safety Report 8263814-6 (Version None)
Quarter: 2012Q2

REPORT INFORMATION
  Report Type: 
  Country: None (occurrence: None)
  Receive Date: 20120405
  Receipt Date: 20120326
  Transmission Date: 20120825
  Serious: Yes (Hospitalization)
  Sender: FDA-Public Use
  Company Number: FR-ALLERGAN-1204741US

PATIENT
  Age: 65 Year
  Sex: Male

DRUGS (3)
  1. AMLODIPINE BESYLATE [Concomitant]
     Indication: HYPERTENSION
     Dosage: UNK
     Dates: start: 20030101
  2. DOXAZOSIN MESYLATE [Suspect]
     Indication: POLLAKIURIA
     Dosage: 1 DF, QD
     Route: 048
     Dates: start: 20111101, end: 20111110
  3. TROSPIUM CHLORIDE [Suspect]
     Indication: MICTURITION URGENCY
     Dosage: 40 MG, QD
     Route: 048
     Dates: start: 20111101, end: 20111110

REACTIONS (4)
  - CARDIAC FAILURE [None]
  - ARRHYTHMIA [None]
  - ATRIAL FIBRILLATION [None]
  - OEDEMA PERIPHERAL [None]
